FAERS Safety Report 25218881 (Version 2)
Quarter: 2025Q2

REPORT INFORMATION
  Report Type: Spontaneous
  Country: US (occurrence: US)
  Receive Date: 20250421
  Receipt Date: 20250620
  Transmission Date: 20250716
  Serious: No
  Sender: NOVARTIS
  Company Number: US-002147023-NVSC2025US065082

PATIENT
  Age: 37 Year
  Sex: Female

DRUGS (3)
  1. KESIMPTA [Suspect]
     Active Substance: OFATUMUMAB
     Indication: Product used for unknown indication
     Dosage: 20 MG, QMO (1ST LOADING DOSE)
     Route: 058
     Dates: start: 20250328
  2. KESIMPTA [Suspect]
     Active Substance: OFATUMUMAB
     Dosage: 20 MG, QMO (2ND LOADING DOSE)
     Route: 058
     Dates: start: 20250404
  3. KESIMPTA [Suspect]
     Active Substance: OFATUMUMAB
     Dosage: 20 MG, QMO (3RD DOSE)
     Route: 058
     Dates: start: 20250411

REACTIONS (8)
  - Influenza [Unknown]
  - Nasopharyngitis [Unknown]
  - Rhinorrhoea [Unknown]
  - Irritability [Unknown]
  - Decreased appetite [Unknown]
  - Fatigue [Unknown]
  - Migraine [Unknown]
  - Nasal congestion [Unknown]

NARRATIVE: CASE EVENT DATE: 20250328
